FAERS Safety Report 19867218 (Version 1)
Quarter: 2021Q3

REPORT INFORMATION
  Report Type: Spontaneous
  Country: SI (occurrence: SI)
  Receive Date: 20210921
  Receipt Date: 20210921
  Transmission Date: 20211014
  Serious: Yes (Other)
  Sender: FDA-Public Use
  Company Number: SI-MYLANLABS-2021M1063425

PATIENT
  Sex: Male

DRUGS (43)
  1. PRENESSA [Concomitant]
     Active Substance: PERINDOPRIL
     Dosage: 4 MILLIGRAM (4 MG (2X1))
     Route: 065
     Dates: start: 201606
  2. PRENESSA [Concomitant]
     Active Substance: PERINDOPRIL
     Dosage: 8 MILLIGRAM
     Route: 065
  3. LACIPIL [Concomitant]
     Active Substance: LACIDIPINE
     Dosage: 4 MILLIGRAM, PM (4 MG (IN THE EVENING))
     Route: 065
     Dates: start: 201104
  4. PLAVIX [Concomitant]
     Active Substance: CLOPIDOGREL BISULFATE
     Indication: PRODUCT USED FOR UNKNOWN INDICATION
     Dosage: UNK (ONE YEAR)
     Route: 065
  5. PANTOPRAZOLE [Concomitant]
     Active Substance: PANTOPRAZOLE
     Dosage: 20 MILLIGRAM, AM (20 MG (IN THE MORNING))
     Route: 065
     Dates: start: 201606
  6. EFIENT [Concomitant]
     Active Substance: PRASUGREL HYDROCHLORIDE
     Dosage: 10 MILLIGRAM (10 MG (ONE YEAR))
     Route: 065
     Dates: start: 201606, end: 201704
  7. PRENESSA [Concomitant]
     Active Substance: PERINDOPRIL
     Dosage: 8 MILLIGRAM
     Route: 065
     Dates: start: 201912
  8. NOLPAZA [Concomitant]
     Active Substance: PANTOPRAZOLE SODIUM
     Indication: PRODUCT USED FOR UNKNOWN INDICATION
     Dosage: 20 MILLIGRAM, AM (20 MG (IN THE MORNING))
     Route: 065
     Dates: start: 201912
  9. SORTIS [Concomitant]
     Active Substance: ATORVASTATIN
     Dosage: 20 MILLIGRAM, PM (20 MG (IN THE EVENNING))
     Route: 065
     Dates: start: 201606
  10. LACIPIL [Concomitant]
     Active Substance: LACIDIPINE
     Dosage: 4 MILLIGRAM, PM (4 MG (IN THE EVENING))
     Route: 065
     Dates: start: 201606
  11. LACIPIL [Concomitant]
     Active Substance: LACIDIPINE
     Dosage: 4 MILLIGRAM, PM (4 MG (IN THE EVENING))
     Route: 065
     Dates: start: 201604
  12. ULTOP                              /00661201/ [Concomitant]
     Indication: PRODUCT USED FOR UNKNOWN INDICATION
     Dosage: UNK UNK, AM(UNK (IN THE MORNING))
     Route: 065
  13. ATORVASTATIN [Suspect]
     Active Substance: ATORVASTATIN
     Indication: HYPERCHOLESTEROLAEMIA
     Dosage: UNK
     Route: 065
  14. EFIENT [Concomitant]
     Active Substance: PRASUGREL HYDROCHLORIDE
     Indication: PRODUCT USED FOR UNKNOWN INDICATION
     Dosage: 10 MILLIGRAM (10 MG (ONE YEAR))
     Route: 065
     Dates: start: 201604
  15. LACIPIL [Concomitant]
     Active Substance: LACIDIPINE
     Dosage: 6 MILLIGRAM
     Route: 065
     Dates: start: 201912
  16. LACIPIL [Concomitant]
     Active Substance: LACIDIPINE
     Dosage: 6 MILLIGRAM, PM (6 MG (IN THE EVENING))
     Route: 065
  17. RANEXA [Concomitant]
     Active Substance: RANOLAZINE
     Indication: PRODUCT USED FOR UNKNOWN INDICATION
     Dosage: 500 MILLIGRAM, BID (500 MG, Q12H)
     Route: 065
     Dates: start: 201606
  18. RANEXA [Concomitant]
     Active Substance: RANOLAZINE
     Dosage: 375 MILLIGRAM, BID (375 MG, Q12H)
     Route: 065
     Dates: start: 201606
  19. CATALIP [Concomitant]
     Active Substance: FENOFIBRATE
     Dosage: 250 MILLIGRAM, PM (250 MG (IN THE EVENING))
     Route: 065
     Dates: start: 201912
  20. EZETIMIBE. [Suspect]
     Active Substance: EZETIMIBE
     Indication: HYPERCHOLESTEROLAEMIA
     Dosage: UNK
     Route: 065
  21. PRENESSA [Concomitant]
     Active Substance: PERINDOPRIL
     Dosage: 8 MILLIGRAM, AM (8 MG (IN THE MORNING))
     Route: 065
     Dates: start: 201912
  22. REPATHA [Concomitant]
     Active Substance: EVOLOCUMAB
     Indication: PRODUCT USED FOR UNKNOWN INDICATION
     Dosage: 140 MILLIGRAM (140 MG, Q2W (EVERY 14 DAYS))
     Route: 058
  23. PLAVIX [Concomitant]
     Active Substance: CLOPIDOGREL BISULFATE
     Dosage: 75 MILLIGRAM (75 MG (HALF A YEAR))
     Route: 065
     Dates: start: 201912
  24. PANTOPRAZOLE [Concomitant]
     Active Substance: PANTOPRAZOLE
     Indication: PRODUCT USED FOR UNKNOWN INDICATION
     Dosage: 20 MILLIGRAM, AM (20 MG (IN THE MORNING))
     Route: 065
     Dates: start: 201604
  25. PRENESSA [Concomitant]
     Active Substance: PERINDOPRIL
     Dosage: 6 MILLIGRAM (4 MG IN THE MORNING AND 2 MG IN THE EVENING)
     Route: 065
     Dates: start: 201104
  26. LACIPIL [Concomitant]
     Active Substance: LACIDIPINE
     Indication: PRODUCT USED FOR UNKNOWN INDICATION
     Dosage: 6 MILLIGRAM, PM (6 MG (IN THE EVENING))
     Route: 065
     Dates: start: 201606
  27. LACIPIL [Concomitant]
     Active Substance: LACIDIPINE
     Dosage: 6 MILLIGRAM, PM (6 MG (IN THE EVENING))
     Route: 065
     Dates: start: 201912
  28. REPATHA [Concomitant]
     Active Substance: EVOLOCUMAB
     Dosage: 140 MILLIGRAM (140 MG, Q2W (1X EVERY 14 DAYS))
     Route: 065
     Dates: start: 202006, end: 202010
  29. PLAVIX [Concomitant]
     Active Substance: CLOPIDOGREL BISULFATE
     Dosage: 75 MILLIGRAM
     Route: 065
     Dates: start: 201111
  30. CATALIP [Concomitant]
     Active Substance: FENOFIBRATE
     Indication: PRODUCT USED FOR UNKNOWN INDICATION
     Dosage: UNK
     Route: 065
     Dates: start: 201606
  31. CATALIP [Concomitant]
     Active Substance: FENOFIBRATE
     Dosage: 250 MILLIGRAM
     Route: 065
     Dates: start: 201912
  32. ASPIRIN                            /00002701/ [Concomitant]
     Active Substance: ASPIRIN
     Indication: PRODUCT USED FOR UNKNOWN INDICATION
     Dosage: UNK
     Route: 065
  33. PRENESSA [Concomitant]
     Active Substance: PERINDOPRIL
     Indication: PRODUCT USED FOR UNKNOWN INDICATION
     Dosage: 4 MILLIGRAM (4 MG (2X1))
     Route: 065
     Dates: start: 201604
  34. PRENESSA [Concomitant]
     Active Substance: PERINDOPRIL
     Dosage: 8 MILLIGRAM
     Route: 065
     Dates: start: 202006
  35. LACIPIL [Concomitant]
     Active Substance: LACIDIPINE
     Dosage: 4 MILLIGRAM, PM (4 MG (IN THE EVENING))
     Route: 065
     Dates: start: 201111
  36. LACIPIL [Concomitant]
     Active Substance: LACIDIPINE
     Dosage: 6 MILLIGRAM
     Route: 065
     Dates: start: 202006
  37. PRENEWEL [Concomitant]
     Active Substance: INDAPAMIDE\PERINDOPRIL ERBUMINE
     Indication: PRODUCT USED FOR UNKNOWN INDICATION
     Dosage: UNK
     Route: 065
     Dates: start: 201606
  38. CRESTOR [Suspect]
     Active Substance: ROSUVASTATIN CALCIUM
     Indication: PRODUCT USED FOR UNKNOWN INDICATION
     Dosage: UNK UNK, PM (UNK (IN THE EVENING))
     Route: 065
  39. PRENESSA [Concomitant]
     Active Substance: PERINDOPRIL
     Dosage: 4 MILLIGRAM, AM (4 MG (IN THE MORNING))
     Route: 065
     Dates: start: 201111
  40. LACIPIL [Concomitant]
     Active Substance: LACIDIPINE
     Dosage: 2 MILLIGRAM, AM (2 MG (IN THE MORNING))
     Route: 065
     Dates: start: 201606
  41. COUPET [Suspect]
     Active Substance: ROSUVASTATIN CALCIUM
     Indication: HYPERCHOLESTEROLAEMIA
     Dosage: 10 MILLIGRAM, PM (10 MG (IN THE EVENING))
     Route: 065
     Dates: start: 201104, end: 201106
  42. SORTIS [Concomitant]
     Active Substance: ATORVASTATIN
     Indication: PRODUCT USED FOR UNKNOWN INDICATION
     Dosage: 20 MILLIGRAM, PM (20 MG (IN THE EVENNING))
     Route: 065
     Dates: start: 201604
  43. PLAVIX [Concomitant]
     Active Substance: CLOPIDOGREL BISULFATE
     Dosage: 75 MILLIGRAM
     Route: 065
     Dates: start: 202006

REACTIONS (3)
  - Drug intolerance [Unknown]
  - Bradycardia [Unknown]
  - Myalgia [Recovering/Resolving]
